FAERS Safety Report 5979430-2 (Version None)
Quarter: 2008Q4

REPORT INFORMATION
  Report Type: 
  Country: None (occurrence: None)
  Receive Date: 20081204
  Receipt Date: 20081123
  Transmission Date: 20090506
  Serious: Yes (Hospitalization)
  Sender: FDA-Public Use
  Company Number: IL-ELI_LILLY_AND_COMPANY-IL200811005579

PATIENT
  Age: 40 Year
  Sex: Male

DRUGS (1)
  1. BYETTA [Suspect]
     Indication: DIABETES MELLITUS
     Dosage: 5 UG, UNK
     Route: 058
     Dates: end: 20081101

REACTIONS (4)
  - DIARRHOEA [None]
  - DYSPEPSIA [None]
  - DYSPNOEA [None]
  - HEART RATE IRREGULAR [None]
